FAERS Safety Report 19686455 (Version 2)
Quarter: 2021Q3

REPORT INFORMATION
  Report Type: Spontaneous
  Country: AT (occurrence: AT)
  Receive Date: 20210811
  Receipt Date: 20210909
  Transmission Date: 20211014
  Serious: Yes (Other)
  Sender: FDA-Public Use
  Company Number: AT-PFIZER INC-2021357898

PATIENT
  Age: 47 Year
  Sex: Male

DRUGS (5)
  1. ETANERCEPT [Concomitant]
     Active Substance: ETANERCEPT
  2. METHOTREXATE SODIUM. [Suspect]
     Active Substance: METHOTREXATE SODIUM
  3. APREMILAST [Concomitant]
     Active Substance: APREMILAST
  4. ADALIMUMAB [Concomitant]
     Active Substance: ADALIMUMAB
  5. GOLIMUMAB [Concomitant]
     Active Substance: GOLIMUMAB

REACTIONS (5)
  - Condition aggravated [Unknown]
  - Drug ineffective [Unknown]
  - Enthesopathy [Unknown]
  - Polyarthritis [Unknown]
  - Psoriatic arthropathy [Unknown]
